FAERS Safety Report 5404472-5 (Version None)
Quarter: 2007Q3

REPORT INFORMATION
  Report Type: 
  Country: None (occurrence: None)
  Receive Date: 20070730
  Receipt Date: 20061011
  Transmission Date: 20080115
  Serious: Yes (Death, Hospitalization)
  Sender: FDA-Public Use
  Company Number: 6024651

PATIENT
  Age: 91 Year
  Sex: Female

DRUGS (6)
  1. BUMETANIDE [Suspect]
     Indication: HYPERTENSION
  2. DICLOFENAC (DICLOFENAC) [Suspect]
     Indication: OSTEOARTHRITIS
     Dosage: TOPICAL
     Route: 061
  3. IBUPROFEN [Suspect]
     Indication: ILL-DEFINED DISORDER
  4. IBUPROFEN [Suspect]
     Indication: OSTEOARTHRITIS
  5. SPIRONOLACTONE [Suspect]
     Indication: HYPERTENSION
  6. DIGOXIN [Suspect]
     Indication: ATRIAL FIBRILLATION
     Dosage: ORAL
     Route: 048

REACTIONS (4)
  - BLOOD CREATININE INCREASED [None]
  - BLOOD POTASSIUM INCREASED [None]
  - ELECTROLYTE IMBALANCE [None]
  - RENAL FAILURE [None]
